FAERS Safety Report 11558232 (Version 1)
Quarter: 2015Q3

REPORT INFORMATION
  Report Type: Spontaneous
  Country: US (occurrence: None)
  Receive Date: 20150925
  Receipt Date: 20150925
  Transmission Date: 20151125
  Serious: No
  Sender: FDA-Public Use
  Company Number: None

PATIENT
  Age: 54 Year

DRUGS (3)
  1. CARVEDILOL. [Concomitant]
     Active Substance: CARVEDILOL
  2. MULTI-VITAMIN [Concomitant]
     Active Substance: .ALPHA.-TOCOPHEROL ACETATE, DL-\ASCORBIC ACID\CYANOCOBALAMIN\FLUORIDE ION\FOLIC ACID\NIACIN\PYRIDOXINE\RIBOFLAVIN\THIAMINE\VITAMIN A\VITAMIN D
  3. GLEEVEC [Suspect]
     Active Substance: IMATINIB MESYLATE
     Indication: MYELOID LEUKAEMIA
     Route: 048
     Dates: start: 201501

REACTIONS (4)
  - Diarrhoea [None]
  - Fluid retention [None]
  - Swelling [None]
  - Nausea [None]
